FAERS Safety Report 4517778-9 (Version None)
Quarter: 2004Q4

REPORT INFORMATION
  Report Type: 
  Country: None (occurrence: None)
  Receive Date: 20041124
  Receipt Date: 20041124
  Transmission Date: 20050328
  Serious: Yes (Hospitalization, Other)
  Sender: FDA-Public Use
  Company Number: None

PATIENT
  Age: 53 Year
  Sex: Male
  Weight: 98.4306 kg

DRUGS (14)
  1. CELEBREX [Suspect]
     Indication: ARTHRALGIA
     Dosage: 100 MG PO BID
     Route: 048
     Dates: start: 20041001
  2. CELEBREX [Suspect]
     Indication: SCOLIOSIS
     Dosage: 100 MG PO BID
     Route: 048
     Dates: start: 20041001
  3. CELEBREX [Suspect]
     Indication: ARTHRALGIA
     Dosage: 100 MG PO BID
     Route: 048
     Dates: start: 20041002
  4. CELEBREX [Suspect]
     Indication: SCOLIOSIS
     Dosage: 100 MG PO BID
     Route: 048
     Dates: start: 20041002
  5. CELEBREX [Suspect]
     Indication: ARTHRALGIA
     Dosage: 100 MG PO BID
     Route: 048
     Dates: start: 20041003
  6. CELEBREX [Suspect]
     Indication: SCOLIOSIS
     Dosage: 100 MG PO BID
     Route: 048
     Dates: start: 20041003
  7. ACARBOSE [Concomitant]
  8. INSULIN ISOPHANE/REGULAR 70/30 [Concomitant]
  9. OMEPRAZOLE [Concomitant]
  10. MICONAZOLE [Concomitant]
  11. MULTI-VITAMIN [Concomitant]
  12. HALOPERIDOL [Concomitant]
  13. SETRALINE [Concomitant]
  14. BENZTROOPINE [Concomitant]

REACTIONS (4)
  - BLISTER [None]
  - RASH MACULO-PAPULAR [None]
  - RASH PRURITIC [None]
  - SKIN DESQUAMATION [None]
